FAERS Safety Report 7282717-7 (Version None)
Quarter: 2011Q1

REPORT INFORMATION
  Report Type: 
  Country: None (occurrence: None)
  Receive Date: 20110209
  Receipt Date: 20110131
  Transmission Date: 20110831
  Serious: Yes (Hospitalization)
  Sender: FDA-Public Use
  Company Number: GB-JNJFOC-JAUK26235

PATIENT
  Sex: Female

DRUGS (3)
  1. DAKTARIN [Suspect]
     Indication: ORAL CANDIDIASIS
     Route: 002
     Dates: start: 19950710, end: 19950724
  2. WARFARIN SODIUM [Interacting]
     Indication: AORTIC VALVE DISEASE
     Route: 048
  3. DAKTARIN [Suspect]
     Route: 002
     Dates: start: 19950710, end: 19950724

REACTIONS (5)
  - ECCHYMOSIS [None]
  - INTERNATIONAL NORMALISED RATIO INCREASED [None]
  - HAEMATURIA [None]
  - EPISTAXIS [None]
  - DRUG INTERACTION [None]
